FAERS Safety Report 17065412 (Version 1)
Quarter: 2019Q4

REPORT INFORMATION
  Report Type: Report from Study
  Country: CA (occurrence: CA)
  Receive Date: 20191122
  Receipt Date: 20191122
  Transmission Date: 20200122
  Serious: Yes (Hospitalization)
  Sender: FDA-Public Use
  Company Number: CA-GLAXOSMITHKLINE-CA2019AMR167058

PATIENT
  Sex: Female

DRUGS (2)
  1. MEPOLIZUMAB [Suspect]
     Active Substance: MEPOLIZUMAB
     Dosage: 100 MG, Z ONE MONTH
     Route: 042
  2. MEPOLIZUMAB [Suspect]
     Active Substance: MEPOLIZUMAB
     Indication: ASTHMA
     Dosage: 100 MG, Z ONE MONTH
     Route: 042
     Dates: start: 20181217

REACTIONS (9)
  - Sleep disorder due to a general medical condition [Unknown]
  - Hospitalisation [Unknown]
  - Multiple allergies [Unknown]
  - Dyspnoea [Unknown]
  - Oxygen saturation abnormal [Unknown]
  - Pyrexia [Unknown]
  - Loss of personal independence in daily activities [Unknown]
  - Asthma [Unknown]
  - Nasopharyngitis [Unknown]
